FAERS Safety Report 5877979-4 (Version None)
Quarter: 2008Q3

REPORT INFORMATION
  Report Type: 
  Country: None (occurrence: None)
  Receive Date: 20080911
  Receipt Date: 20080903
  Transmission Date: 20090109
  Serious: Yes (Other)
  Sender: FDA-Public Use
  Company Number: JP-BAYER-200812061BYL

PATIENT
  Age: 71 Year
  Sex: Male
  Weight: 43 kg

DRUGS (11)
  1. NEXAVAR [Suspect]
     Indication: RENAL CELL CARCINOMA STAGE IV
     Dosage: UNIT DOSE: 200 MG
     Route: 048
     Dates: start: 20080725, end: 20080819
  2. NEXAVAR [Suspect]
     Dosage: UNIT DOSE: 200 MG
     Route: 048
     Dates: start: 20080825
  3. GASTER D [Concomitant]
     Route: 048
     Dates: start: 20080717
  4. LOXONIN [Concomitant]
     Route: 048
     Dates: start: 20080707, end: 20080718
  5. MUCOSTA [Concomitant]
     Route: 048
     Dates: start: 20080707, end: 20080718
  6. ALOSENN [Concomitant]
     Route: 048
     Dates: start: 20080707
  7. MAGLAX [Concomitant]
     Route: 048
     Dates: start: 20080707
  8. OXYCONTIN [Concomitant]
     Route: 048
     Dates: start: 20080716, end: 20080812
  9. OXYCONTIN [Concomitant]
     Route: 048
     Dates: start: 20080707, end: 20080715
  10. DUROTEP [Concomitant]
     Route: 062
     Dates: start: 20080813
  11. NOVAMIN [Concomitant]
     Dosage: UNIT DOSE: 5 MG
     Route: 048
     Dates: start: 20080716

REACTIONS (5)
  - HYPERTENSION [None]
  - PALMAR-PLANTAR ERYTHRODYSAESTHESIA SYNDROME [None]
  - PYREXIA [None]
  - RASH [None]
  - SEPSIS [None]
